FAERS Safety Report 7768030 (Version 8)
Quarter: 2013Q4

REPORT INFORMATION
  Report Type: Spontaneous
  Country: US (occurrence: US)
  Receive Date: 20110121
  Receipt Date: 20131227
  Transmission Date: 20140711
  Serious: Yes (Hospitalization, Other)
  Sender: FDA-Public Use
  Company Number: US-BIOGENIDEC-2011BI001630

PATIENT
  Sex: Female

DRUGS (14)
  1. AVONEX [Suspect]
     Indication: MULTIPLE SCLEROSIS
     Route: 030
     Dates: start: 19960619, end: 20010620
  2. AVONEX [Suspect]
     Indication: MULTIPLE SCLEROSIS
     Route: 030
     Dates: start: 20090914, end: 20101201
  3. AVONEX [Suspect]
     Indication: MULTIPLE SCLEROSIS
     Route: 030
     Dates: start: 20111122
  4. BICARBONATE [Concomitant]
  5. ALEVE [Concomitant]
  6. ASPIRIN [Concomitant]
  7. LASIX [Concomitant]
  8. POTASSIUM [Concomitant]
  9. PREMARIN [Concomitant]
  10. SIMVASTATIN [Concomitant]
  11. SYNTHROID [Concomitant]
  12. TYLENOL EXTRA STRENGTH [Concomitant]
  13. VIIBRYD [Concomitant]
  14. VITAMIN D3 [Concomitant]

REACTIONS (3)
  - Small cell carcinoma [Recovered/Resolved]
  - Malignant neoplasm of unknown primary site [Recovered/Resolved]
  - Upper respiratory tract infection [Not Recovered/Not Resolved]
